FAERS Safety Report 4316078-X (Version None)
Quarter: 2004Q1

REPORT INFORMATION
  Report Type: 
  Country: None (occurrence: None)
  Receive Date: 20040309
  Receipt Date: 20040220
  Transmission Date: 20041129
  Serious: Yes (Death)
  Sender: FDA-Public Use
  Company Number: B0324417A

PATIENT
  Age: 75 Year
  Sex: Male

DRUGS (5)
  1. EPIVIR [Suspect]
     Dosage: 100 MG/ PER DAY/
  2. DIGOXIN [Concomitant]
  3. FRUSEMIDE [Concomitant]
  4. SPIRONOLACTONE [Concomitant]
  5. FLUID THERAPY [Concomitant]

REACTIONS (4)
  - HEPATIC CIRRHOSIS [None]
  - ILEUS [None]
  - MULTI-ORGAN FAILURE [None]
  - PANCREATITIS ACUTE [None]
